FAERS Safety Report 7331027-8 (Version None)
Quarter: 2011Q1

REPORT INFORMATION
  Report Type: 
  Country: None (occurrence: None)
  Receive Date: 20110228
  Receipt Date: 20110228
  Transmission Date: 20110831
  Serious: Yes (Other)
  Sender: FDA-Public Use
  Company Number: None

PATIENT
  Age: 68 Year
  Sex: Male
  Weight: 84.369 kg

DRUGS (6)
  1. AMBIEN [Suspect]
     Indication: INSOMNIA
     Dosage: 5MG QHS X  1 MOS  PO
     Route: 048
     Dates: start: 20110106, end: 20110206
  2. SYNTHROID [Concomitant]
  3. AMLODIPINE [Concomitant]
  4. ISRADIPINE [Concomitant]
  5. LIPITOR [Concomitant]
  6. DYAZIDE [Concomitant]

REACTIONS (4)
  - SUICIDAL IDEATION [None]
  - PANIC ATTACK [None]
  - WITHDRAWAL SYNDROME [None]
  - DEPRESSION [None]
